FAERS Safety Report 25608087 (Version 2)
Quarter: 2025Q3

REPORT INFORMATION
  Report Type: Report from Study
  Country: CA (occurrence: CA)
  Receive Date: 20250725
  Receipt Date: 20250801
  Transmission Date: 20251021
  Serious: Yes (Other)
  Sender: TAKEDA
  Company Number: CA-TAKEDA-2025TUS065902

PATIENT
  Age: 58 Year
  Sex: Female

DRUGS (4)
  1. VEDOLIZUMAB [Suspect]
     Active Substance: VEDOLIZUMAB
     Indication: Colitis microscopic
  2. BUDESONIDE [Concomitant]
     Active Substance: BUDESONIDE
     Dosage: 6 MILLIGRAM, QD
     Dates: start: 202312
  3. BISOPROLOL [Concomitant]
     Active Substance: BISOPROLOL
  4. Reactine [Concomitant]

REACTIONS (2)
  - Pneumonia [Recovered/Resolved]
  - Off label use [Unknown]

NARRATIVE: CASE EVENT DATE: 20240508
